FAERS Safety Report 7107084 (Version 1)
Quarter: 2020Q3

REPORT INFORMATION
  Report Type: Spontaneous
  Country: GB (occurrence: GB)
  Receive Date: 20090908
  Receipt Date: 20090908
  Transmission Date: 20201105
  Serious: Yes (Disabling)
  Sender: FDA-Public Use
  Company Number: GB-ROCHE-653153

PATIENT
  Age: 65 Year
  Sex: Female
  Weight: 64 kg

DRUGS (4)
  1. ALENDRONIC ACID [Suspect]
     Active Substance: ALENDRONIC ACID
     Indication: OSTEOPOROSIS
     Route: 048
     Dates: start: 20021022, end: 200711
  2. IBANDRONIC ACID. [Suspect]
     Active Substance: IBANDRONIC ACID
     Indication: OSTEOPOROSIS
     Dosage: ACTION TAKEN WITH DRUG: DRUG WITHDRAWN.
     Route: 048
     Dates: start: 200711, end: 200907
  3. CALCIUM [Concomitant]
     Active Substance: CALCIUM
     Indication: OSTEOPOROSIS
     Route: 048
     Dates: start: 20070725
  4. ERGOCALCIFEROL. [Concomitant]
     Active Substance: ERGOCALCIFEROL
     Indication: OSTEOPOROSIS
     Dosage: ACTIVE CONSTITUENTS OF DRUG: VITAMIN D, VITAMIN D SUBSTANCES.
     Route: 048
     Dates: start: 20070725

REACTIONS (4)
  - Osteonecrosis [Unknown]
  - Resorption bone increased [Unknown]
  - Pain [Unknown]
  - Device failure [Unknown]

NARRATIVE: CASE EVENT DATE: 20090101
